FAERS Safety Report 6511280-0 (Version None)
Quarter: 2009Q4

REPORT INFORMATION
  Report Type: 
  Country: None (occurrence: None)
  Receive Date: 20091222
  Receipt Date: 20090320
  Transmission Date: 20100525
  Serious: No
  Sender: FDA-Public Use
  Company Number: US-ASTRAZENECA-2009UW07346

PATIENT
  Sex: Female
  Weight: 59.9 kg

DRUGS (8)
  1. CRESTOR [Suspect]
     Route: 048
     Dates: start: 20090219, end: 20090319
  2. LIPITOR [Concomitant]
  3. FOSAMAX [Concomitant]
  4. FEMARA [Concomitant]
  5. CALCIUM CITRATE [Concomitant]
  6. COENZYME Q10 [Concomitant]
  7. FISH OIL [Concomitant]
  8. MULTI-VITAMIN [Concomitant]

REACTIONS (2)
  - ILL-DEFINED DISORDER [None]
  - PAIN IN EXTREMITY [None]
